FAERS Safety Report 19882891 (Version 5)
Quarter: 2021Q4

REPORT INFORMATION
  Report Type: Spontaneous
  Country: JP (occurrence: JP)
  Receive Date: 20210924
  Receipt Date: 20211214
  Transmission Date: 20220303
  Serious: Yes (Death, Hospitalization, Other)
  Sender: FDA-Public Use
  Company Number: JP-MSD-M2021-12121

PATIENT
  Age: 80 Year
  Sex: Male
  Weight: 60 kg

DRUGS (14)
  1. KEYTRUDA [Suspect]
     Active Substance: PEMBROLIZUMAB
     Indication: Hypopharyngeal cancer stage IV
     Dosage: 200 MILLIGRAM, Q3W
     Route: 041
     Dates: start: 20210428, end: 20210428
  2. FLUOROURACIL [Concomitant]
     Active Substance: FLUOROURACIL
     Indication: Hypopharyngeal cancer stage IV
     Dosage: 100MG/M2?4/DOSE, Q3W
     Route: 041
     Dates: start: 20210428, end: 20210501
  3. CISPLATIN [Concomitant]
     Active Substance: CISPLATIN
     Indication: Head and neck cancer
     Dosage: UNK
     Route: 041
  4. CARBOPLATIN [Concomitant]
     Active Substance: CARBOPLATIN
     Indication: Hypopharyngeal cancer stage IV
     Dosage: 315 MILLIGRAM, Q3W
     Route: 051
     Dates: start: 20210428, end: 20210428
  5. AMLODIPINE BESYLATE [Concomitant]
     Active Substance: AMLODIPINE BESYLATE
     Indication: Hypertension
     Dosage: 5 MILLIGRAM, QD
     Route: 048
     Dates: start: 20210507
  6. CARBOCYSTEINE [Concomitant]
     Active Substance: CARBOCYSTEINE
     Dosage: UNK
     Route: 048
  7. JANUVIA [Concomitant]
     Active Substance: SITAGLIPTIN PHOSPHATE
     Dosage: UNK
     Route: 048
  8. TELMISARTAN [Concomitant]
     Active Substance: TELMISARTAN
     Dosage: UNK
     Route: 048
  9. BELSOMRA [Concomitant]
     Active Substance: SUVOREXANT
     Dosage: UNK
     Route: 048
  10. LIMAPROST [Concomitant]
     Active Substance: LIMAPROST
     Dosage: UNK
     Route: 048
  11. LUNESTA [Concomitant]
     Active Substance: ESZOPICLONE
     Dosage: UNK
     Route: 048
  12. LEVOCETIRIZINE DIHYDROCHLORIDE [Concomitant]
     Active Substance: LEVOCETIRIZINE DIHYDROCHLORIDE
     Dosage: UNK
     Route: 048
  13. ROSUVASTATIN OD [Concomitant]
     Dosage: UNK
     Route: 048
  14. ROZEREM [Concomitant]
     Active Substance: RAMELTEON
     Dosage: UNK
     Route: 048

REACTIONS (3)
  - Hepatitis fulminant [Fatal]
  - Hepatic encephalopathy [Unknown]
  - Infection [Unknown]

NARRATIVE: CASE EVENT DATE: 20210518
